FAERS Safety Report 8403652-4 (Version None)
Quarter: 2012Q2

REPORT INFORMATION
  Report Type: 
  Country: None (occurrence: None)
  Receive Date: 20120601
  Receipt Date: 20120524
  Transmission Date: 20120825
  Serious: Yes (Hospitalization)
  Sender: FDA-Public Use
  Company Number: DE-ACTELION-A-US2010-35455

PATIENT

DRUGS (14)
  1. VENTAVIS [Suspect]
     Indication: PULMONARY ARTERIAL HYPERTENSION
     Dosage: 2.5 UG, 5 X DAY
     Route: 055
     Dates: start: 20090328
  2. IRON [Concomitant]
  3. ENOXAPARIN SODIUM [Concomitant]
  4. CIPROFLOXACIN [Concomitant]
  5. METAMIZOLE [Concomitant]
  6. PERENTEROL [Concomitant]
  7. MARCUMAR [Concomitant]
  8. TORSEMIDE [Concomitant]
  9. VENTAVIS [Suspect]
     Dosage: Q4H
     Route: 055
     Dates: start: 20110401
  10. TRACLEER [Concomitant]
     Indication: PULMONARY ARTERIAL HYPERTENSION
     Dosage: UNK
     Route: 048
     Dates: start: 20081219, end: 20110401
  11. REVATIO [Concomitant]
  12. XIPAMIDE [Concomitant]
  13. CALCITRIOL [Concomitant]
  14. VENTAVIS [Suspect]
     Dosage: 6XDAY
     Route: 055

REACTIONS (11)
  - RENAL FAILURE ACUTE [None]
  - BUNDLE BRANCH BLOCK RIGHT [None]
  - DYSPNOEA [None]
  - URINARY TRACT INFECTION [None]
  - HAEMANGIOMA [None]
  - EPISTAXIS [None]
  - TRANSFUSION [None]
  - RIGHT VENTRICULAR FAILURE [None]
  - OEDEMA [None]
  - ATRIAL FIBRILLATION [None]
  - ANAEMIA [None]
